FAERS Safety Report 20986195 (Version 1)
Quarter: 2022Q2

REPORT INFORMATION
  Report Type: Spontaneous
  Country: NZ (occurrence: NZ)
  Receive Date: 20220621
  Receipt Date: 20220621
  Transmission Date: 20220721
  Serious: Yes (Hospitalization, Other)
  Sender: FDA-Public Use
  Company Number: NZ-BRISTOL-MYERS SQUIBB COMPANY-2022-057694

PATIENT
  Sex: Male

DRUGS (2)
  1. NIVOLUMAB [Suspect]
     Active Substance: NIVOLUMAB
     Indication: Product used for unknown indication
     Route: 065
     Dates: start: 2019, end: 2020
  2. COVID-19 VACCINE [Concomitant]
     Indication: COVID-19 immunisation
     Dosage: BOOSTER VACCINATION ON 18-MAR-2022, FOLLOWING THREE PREVIOUS VACCINATIONS.

REACTIONS (3)
  - Synovial rupture [Unknown]
  - Melanoma recurrent [Unknown]
  - Polyarthritis [Unknown]

NARRATIVE: CASE EVENT DATE: 20201202
